FAERS Safety Report 12739672 (Version 1)
Quarter: 2016Q3

REPORT INFORMATION
  Report Type: Spontaneous
  Country: US (occurrence: US)
  Receive Date: 20160910
  Receipt Date: 20160910
  Transmission Date: 20161109
  Serious: Yes (Death, Hospitalization)
  Sender: FDA-Public Use
  Company Number: None

PATIENT
  Age: 54 Year
  Sex: Female
  Weight: 63.4 kg

DRUGS (3)
  1. DOXORUBICIN HYDROCHLORIDE. [Suspect]
     Active Substance: DOXORUBICIN HYDROCHLORIDE
     Dates: end: 20130829
  2. TAXOTERE [Suspect]
     Active Substance: DOCETAXEL
     Dates: end: 20130829
  3. CYCLOPHOSPHAMIDE. [Suspect]
     Active Substance: CYCLOPHOSPHAMIDE
     Dates: end: 20130829

REACTIONS (1)
  - Myelodysplastic syndrome [None]

NARRATIVE: CASE EVENT DATE: 20151023
